FAERS Safety Report 25791510 (Version 1)
Quarter: 2025Q3

REPORT INFORMATION
  Report Type: Spontaneous
  Country: US (occurrence: US)
  Receive Date: 20250911
  Receipt Date: 20250911
  Transmission Date: 20251021
  Serious: Yes (Other)
  Sender: NOVO NORDISK
  Company Number: US-NOVOPROD-1516231

PATIENT
  Sex: Male

DRUGS (2)
  1. OZEMPIC [Suspect]
     Active Substance: SEMAGLUTIDE
     Indication: Type 2 diabetes mellitus
     Dosage: .25MG ONCE WEEK FOR 4 WEEKS
     Route: 058
     Dates: start: 20250710
  2. NovoFine 32G 4mm [Concomitant]
     Indication: Type 2 diabetes mellitus

REACTIONS (1)
  - Unevaluable therapy [Unknown]

NARRATIVE: CASE EVENT DATE: 20250701
